FAERS Safety Report 8799098 (Version 1)
Quarter: 2012Q4

REPORT INFORMATION
  Report Type: 
  Country: US (occurrence: US)
  Receive Date: 20120920
  Receipt Date: 20120920
  Transmission Date: 20130627
  Serious: Yes (Other)
  Sender: FDA-Public Use
  Company Number: US-ASTRAZENECA-2011SE68408

PATIENT
  Sex: Female

DRUGS (10)
  1. LISINOPRIL [Suspect]
     Route: 048
  2. METOPROLOL [Concomitant]
     Route: 048
  3. DICLOFENAC [Concomitant]
  4. ACTO PLUS MET [Concomitant]
  5. LANTUS [Concomitant]
  6. HUMALOG [Concomitant]
  7. HCTZ [Concomitant]
  8. ALBUTEROL [Concomitant]
  9. VOLTAREN [Concomitant]
  10. ASPIRIN COMPOUND [Concomitant]

REACTIONS (2)
  - Drug hypersensitivity [Unknown]
  - Swollen tongue [Unknown]
